FAERS Safety Report 9604330 (Version 2)
Quarter: 2013Q4

REPORT INFORMATION
  Report Type: Spontaneous
  Country: IE (occurrence: IE)
  Receive Date: 20131008
  Receipt Date: 20131205
  Transmission Date: 20140711
  Serious: Yes (Hospitalization)
  Sender: FDA-Public Use
  Company Number: PHFR2013IE005611

PATIENT
  Sex: Male

DRUGS (7)
  1. CLOZARIL [Suspect]
     Indication: SCHIZOAFFECTIVE DISORDER
     Dosage: UNK
     Route: 048
     Dates: start: 20071119
  2. CLOZARIL [Suspect]
     Indication: SCHIZOPHRENIA
     Dosage: 350 UKN, DAILY
     Route: 048
  3. VENLAFAXINE [Concomitant]
     Indication: DEPRESSION
     Dosage: 225 UKN, DAILY
     Route: 048
  4. ATORVASTATIN [Concomitant]
     Indication: BLOOD CHOLESTEROL ABNORMAL
     Dosage: 20 UKN, DAILY
     Route: 048
  5. FESOTERODINE [Concomitant]
     Indication: POLLAKIURIA
     Dosage: 8 UKN, DAILY
     Route: 048
  6. OMEPRAZOLE [Concomitant]
     Indication: GASTRITIS
     Dosage: 20 UKN, DAILY
     Route: 048
  7. SERETIDE DISKUS [Concomitant]
     Indication: ASTHMA
     Dosage: UNK UKN, UNK

REACTIONS (4)
  - Brief psychotic disorder with marked stressors [Recovering/Resolving]
  - Asthma [Not Recovered/Not Resolved]
  - Pollakiuria [Not Recovered/Not Resolved]
  - Blood cholesterol increased [Not Recovered/Not Resolved]
